FAERS Safety Report 18378817 (Version 1)
Quarter: 2020Q4

REPORT INFORMATION
  Report Type: Spontaneous
  Country: PT (occurrence: PT)
  Receive Date: 20201013
  Receipt Date: 20201013
  Transmission Date: 20210114
  Serious: Yes (Death, Hospitalization)
  Sender: FDA-Public Use
  Company Number: PT-MYLANLABS-2020M1085787

PATIENT
  Age: 77 Year
  Sex: Male

DRUGS (4)
  1. AMOXICILLIN/CLAVULANIC ACID [Suspect]
     Active Substance: AMOXICILLIN\CLAVULANIC ACID
     Indication: PULMONARY NOCARDIOSIS
     Dosage: UNK
     Route: 065
  2. VANCOMYCIN [Suspect]
     Active Substance: VANCOMYCIN
     Indication: PULMONARY NOCARDIOSIS
     Dosage: UNK
     Route: 065
  3. PIPERACILLIN/TAZOBACTAM [Suspect]
     Active Substance: PIPERACILLIN SODIUM\TAZOBACTAM SODIUM
     Indication: PULMONARY NOCARDIOSIS
     Dosage: UNK
     Route: 065
  4. COTRIMOXAZOLE [Suspect]
     Active Substance: SULFAMETHOXAZOLE\TRIMETHOPRIM
     Indication: PULMONARY NOCARDIOSIS
     Dosage: UNK
     Route: 042

REACTIONS (1)
  - Drug ineffective [Fatal]
